FAERS Safety Report 8553852-8 (Version None)
Quarter: 2012Q3

REPORT INFORMATION
  Report Type: 
  Country: None (occurrence: None)
  Receive Date: 20120731
  Receipt Date: 20120723
  Transmission Date: 20120928
  Serious: Yes (Hospitalization)
  Sender: FDA-Public Use
  Company Number: US-ASTRAZENECA-2012SE52038

PATIENT
  Age: 56 Year
  Sex: Male

DRUGS (2)
  1. NEXIUM [Suspect]
     Route: 048
  2. BLOOD PRESSURE MEDICATION [Concomitant]

REACTIONS (3)
  - KETOACIDOSIS [None]
  - RENAL IMPAIRMENT [None]
  - OEDEMA PERIPHERAL [None]
